FAERS Safety Report 22630417 (Version 1)
Quarter: 2023Q2

REPORT INFORMATION
  Report Type: Spontaneous
  Country: US (occurrence: None)
  Receive Date: 20230620
  Receipt Date: 20230620
  Transmission Date: 20230721
  Serious: Yes (Hospitalization)
  Sender: FDA-Public Use
  Company Number: None

PATIENT
  Sex: Male

DRUGS (9)
  1. ADAKVEO [Suspect]
     Active Substance: CRIZANLIZUMAB-TMCA
     Indication: Sickle cell disease
     Dosage: OTHER FREQUENCY : Q28DAYS;?
     Route: 042
  2. ZOLPIDEM [Concomitant]
  3. RANITIDINE [Concomitant]
  4. PANTOPRAZOLE [Concomitant]
  5. MATHADONE [Concomitant]
  6. KEPPRA [Concomitant]
  7. IBUPROFEN [Concomitant]
  8. HYDOXYUREA [Concomitant]
  9. GABAPENTIN [Concomitant]

REACTIONS (1)
  - Hospitalisation [None]
